FAERS Safety Report 5714225-6 (Version None)
Quarter: 2008Q2

REPORT INFORMATION
  Report Type: 
  Country: None (occurrence: None)
  Receive Date: 20080423
  Receipt Date: 20080204
  Transmission Date: 20081010
  Serious: No
  Sender: FDA-Public Use
  Company Number: US-KINGPHARMUSA00001-K200800161

PATIENT

DRUGS (3)
  1. SKELAXIN [Suspect]
     Indication: MUSCLE SPASMS
     Dosage: 800 MG, 1/2 TABLET BID
     Route: 048
     Dates: start: 20080201
  2. SKELAXIN [Suspect]
     Indication: BURNING SENSATION
  3. SKELAXIN [Suspect]
     Indication: BACK INJURY

REACTIONS (6)
  - DIZZINESS [None]
  - FLATULENCE [None]
  - HEADACHE [None]
  - NAUSEA [None]
  - PRURITUS [None]
  - SCRATCH [None]
